FAERS Safety Report 20785904 (Version 1)
Quarter: 2022Q2

REPORT INFORMATION
  Report Type: Spontaneous
  Country: US (occurrence: None)
  Receive Date: 20220504
  Receipt Date: 20220504
  Transmission Date: 20220720
  Serious: No
  Sender: FDA-Public Use
  Company Number: US-ROCHE-2808557

PATIENT
  Sex: Female
  Weight: 74.910 kg

DRUGS (16)
  1. OCREVUS [Suspect]
     Active Substance: OCRELIZUMAB
     Indication: Multiple sclerosis
     Dosage: HALF STANDARD DOSES ;ONGOING: NO
     Route: 042
     Dates: start: 2017
  2. OCREVUS [Suspect]
     Active Substance: OCRELIZUMAB
     Dosage: YES
     Route: 042
     Dates: start: 20210402
  3. NALTREXONE [Concomitant]
     Active Substance: NALTREXONE
  4. BACLOFEN [Concomitant]
     Active Substance: BACLOFEN
     Indication: Myalgia
  5. GABAPENTIN [Concomitant]
     Active Substance: GABAPENTIN
     Indication: Hypoaesthesia
  6. FIORICET [Concomitant]
     Active Substance: ACETAMINOPHEN\BUTALBITAL\CAFFEINE
     Indication: Migraine
  7. DIAZEPAM [Concomitant]
     Active Substance: DIAZEPAM
  8. ATENOLOL [Concomitant]
     Active Substance: ATENOLOL
     Indication: Hypertension
  9. PANTOPRAZOLE [Concomitant]
     Active Substance: PANTOPRAZOLE
     Indication: Gastrooesophageal reflux disease
  10. NAPROXEN [Concomitant]
     Active Substance: NAPROXEN
     Indication: Bone pain
  11. NAPROXEN [Concomitant]
     Active Substance: NAPROXEN
     Indication: Bone pain
  12. TYLENOL [Concomitant]
     Active Substance: ACETAMINOPHEN
  13. DULOXETINE [Concomitant]
     Active Substance: DULOXETINE
  14. ROBAXIN [Concomitant]
     Active Substance: METHOCARBAMOL
     Indication: Back pain
  15. ADDERALL [Concomitant]
     Active Substance: AMPHETAMINE ASPARTATE\AMPHETAMINE SULFATE\DEXTROAMPHETAMINE SACCHARATE\DEXTROAMPHETAMINE SULFATE
  16. LEVOTHYROXINE [Concomitant]
     Active Substance: LEVOTHYROXINE
     Indication: Hypothyroidism

REACTIONS (3)
  - Fatigue [Not Recovered/Not Resolved]
  - Back pain [Not Recovered/Not Resolved]
  - Gait disturbance [Not Recovered/Not Resolved]

NARRATIVE: CASE EVENT DATE: 20210101
